FAERS Safety Report 6566910-4 (Version None)
Quarter: 2010Q1

REPORT INFORMATION
  Report Type: 
  Country: None (occurrence: None)
  Receive Date: 20100202
  Receipt Date: 20100122
  Transmission Date: 20100710
  Serious: Yes (Hospitalization)
  Sender: FDA-Public Use
  Company Number: JP-ROCHE-682026

PATIENT
  Age: 58 Year
  Sex: Male
  Weight: 55 kg

DRUGS (12)
  1. AVASTIN [Suspect]
     Indication: COLON CANCER METASTATIC
     Route: 041
     Dates: start: 20091211, end: 20091211
  2. ELPLAT [Concomitant]
     Route: 041
     Dates: start: 20091211, end: 20091211
  3. 5-FU [Concomitant]
     Route: 040
  4. 5-FU [Concomitant]
     Route: 040
     Dates: start: 20091211, end: 20091211
  5. 5-FU [Concomitant]
     Route: 041
  6. 5-FU [Concomitant]
     Route: 041
     Dates: start: 20091211, end: 20091201
  7. LEVOFOLINATE [Concomitant]
     Route: 041
  8. LEVOFOLINATE [Concomitant]
     Route: 041
     Dates: start: 20091211, end: 20091211
  9. KYTRIL [Concomitant]
     Route: 065
  10. DECADRON [Concomitant]
     Route: 065
  11. MICARDIS [Concomitant]
     Route: 048
  12. GLIMICRON [Concomitant]
     Route: 048

REACTIONS (4)
  - DISSEMINATED INTRAVASCULAR COAGULATION [None]
  - INTESTINAL PERFORATION [None]
  - PERITONITIS [None]
  - SEPSIS [None]
